FAERS Safety Report 6107880-2 (Version None)
Quarter: 2009Q1

REPORT INFORMATION
  Report Type: 
  Country: None (occurrence: None)
  Receive Date: 20090305
  Receipt Date: 20090305
  Transmission Date: 20090719
  Serious: Yes (Disabling)
  Sender: FDA-Public Use
  Company Number: None

PATIENT
  Age: 41 Year
  Sex: Female
  Weight: 75.7507 kg

DRUGS (11)
  1. AVASTIN [Suspect]
     Indication: METASTASES TO LIVER
     Dosage: 15MG/KG Q3WEEKS IV DRIP
     Route: 041
     Dates: start: 20080121, end: 20090126
  2. AVASTIN [Suspect]
     Indication: METASTATIC MALIGNANT MELANOMA
     Dosage: 15MG/KG Q3WEEKS IV DRIP
     Route: 041
     Dates: start: 20080121, end: 20090126
  3. CISPLATIN [Concomitant]
  4. TAXOL [Concomitant]
  5. MANNITOL [Concomitant]
  6. MAGNESIUM SULFATE [Concomitant]
  7. ARANESP [Concomitant]
  8. TAGAMET [Concomitant]
  9. BENADRYL [Concomitant]
  10. ALOXI [Concomitant]
  11. DECADRON [Concomitant]

REACTIONS (1)
  - NASAL SEPTUM PERFORATION [None]
